FAERS Safety Report 7056710-3 (Version None)
Quarter: 2010Q4

REPORT INFORMATION
  Report Type: 
  Country: None (occurrence: None)
  Receive Date: 20101019
  Receipt Date: 20101008
  Transmission Date: 20110411
  Serious: Yes (Other)
  Sender: FDA-Public Use
  Company Number: 2010US004253

PATIENT
  Age: 15 Year
  Sex: Male

DRUGS (1)
  1. AMBISOME [Suspect]
     Indication: PRODUCT USED FOR UNKNOWN INDICATION
     Dosage: 250 UG, /D, IV NOS
     Route: 042
     Dates: start: 20100910, end: 20100910

REACTIONS (2)
  - CARDIAC DISORDER [None]
  - HYPERTHERMIA [None]
